FAERS Safety Report 15701021 (Version 2)
Quarter: 2018Q4

REPORT INFORMATION
  Report Type: Spontaneous
  Country: NL (occurrence: NL)
  Receive Date: 20181207
  Receipt Date: 20181226
  Transmission Date: 20190205
  Serious: Yes (Hospitalization, Other)
  Sender: FDA-Public Use
  Company Number: PHHY2018NL177382

PATIENT
  Age: 67 Year
  Sex: Male
  Weight: 78 kg

DRUGS (6)
  1. BISOPROLOLFUMARAAT [Suspect]
     Active Substance: BISOPROLOL FUMARATE
     Dosage: 7.5 MG, QD
     Route: 065
  2. BISOPROLOLFUMARAAT [Suspect]
     Active Substance: BISOPROLOL FUMARATE
     Indication: TRANSIENT ISCHAEMIC ATTACK
     Dosage: 2.5 MG, QD
     Route: 065
  3. BISOPROLOLFUMARAAT [Suspect]
     Active Substance: BISOPROLOL FUMARATE
     Dosage: 15 MG, QD
     Route: 048
     Dates: start: 2018
  4. BISOPROLOLFUMARAAT [Suspect]
     Active Substance: BISOPROLOL FUMARATE
     Dosage: 5 MG, QD
     Route: 048
     Dates: start: 20181029
  5. ELIQUIS [Concomitant]
     Active Substance: APIXABAN
     Indication: PRODUCT USED FOR UNKNOWN INDICATION
     Dosage: 2 OT, QD
     Route: 048
     Dates: start: 2018
  6. DOXAZOSIN [Concomitant]
     Active Substance: DOXAZOSIN\DOXAZOSIN MESYLATE
     Indication: PRODUCT USED FOR UNKNOWN INDICATION
     Dosage: 1 OT, QD
     Route: 048

REACTIONS (4)
  - Renal impairment [Not Recovered/Not Resolved]
  - Gait disturbance [Unknown]
  - Cardiac flutter [Unknown]
  - Muscle spasms [Not Recovered/Not Resolved]

NARRATIVE: CASE EVENT DATE: 201808
